FAERS Safety Report 23813259 (Version 2)
Quarter: 2024Q2

REPORT INFORMATION
  Report Type: Spontaneous
  Country: US (occurrence: US)
  Receive Date: 20240503
  Receipt Date: 20240517
  Transmission Date: 20240715
  Serious: Yes (Other)
  Sender: FDA-Public Use
  Company Number: US-HIKMA PHARMACEUTICALS USA INC.-US-H14001-24-03684

PATIENT
  Age: 43 Year
  Sex: Male
  Weight: 81.5 kg

DRUGS (3)
  1. TESTOSTERONE CYPIONATE [Suspect]
     Active Substance: TESTOSTERONE CYPIONATE
     Indication: Testis cancer
     Dosage: UNKNOWN, WEEKLY
     Route: 065
  2. TESTOSTERONE CYPIONATE [Suspect]
     Active Substance: TESTOSTERONE CYPIONATE
     Indication: Orchidectomy
  3. TESTOSTERONE CYPIONATE [Suspect]
     Active Substance: TESTOSTERONE CYPIONATE
     Indication: Testis cancer
     Dosage: UNKNOWN
     Route: 065

REACTIONS (8)
  - Testicular cancer metastatic [Unknown]
  - Asthenia [Unknown]
  - Fatigue [Unknown]
  - Mental disorder [Unknown]
  - Depression [Unknown]
  - Anxiety [Unknown]
  - Therapeutic response shortened [Unknown]
  - Adverse drug reaction [Unknown]

NARRATIVE: CASE EVENT DATE: 20240401
